FAERS Safety Report 24575014 (Version 1)
Quarter: 2024Q4

REPORT INFORMATION
  Report Type: Spontaneous
  Country: FR (occurrence: FR)
  Receive Date: 20241104
  Receipt Date: 20241104
  Transmission Date: 20250115
  Serious: Yes (Other)
  Sender: AUROBINDO
  Company Number: FR-AFSSAPS-PV2024000969

PATIENT
  Age: 47 Year
  Sex: Male
  Weight: 75 kg

DRUGS (2)
  1. METRONIDAZOLE [Suspect]
     Active Substance: METRONIDAZOLE
     Indication: Tooth abscess
     Dosage: 500 MILLIGRAM, 3 TIMES A DAY
     Route: 048
     Dates: start: 20241003, end: 20241008
  2. AMOXICILLIN [Suspect]
     Active Substance: AMOXICILLIN
     Indication: Tooth abscess
     Dosage: UNK
     Route: 048
     Dates: start: 20241003, end: 20241008

REACTIONS (4)
  - Affective disorder [Recovering/Resolving]
  - Gastrointestinal disorder [Recovering/Resolving]
  - Tongue discolouration [Recovering/Resolving]
  - Suicidal ideation [Recovering/Resolving]

NARRATIVE: CASE EVENT DATE: 20241005
